FAERS Safety Report 7214645-7 (Version None)
Quarter: 2011Q1

REPORT INFORMATION
  Report Type: 
  Country: None (occurrence: None)
  Receive Date: 20110107
  Receipt Date: 20090227
  Transmission Date: 20110831
  Serious: Yes (Life-Threatening, Hospitalization)
  Sender: FDA-Public Use
  Company Number: PHHY2009DE07635

PATIENT
  Age: 76 Year
  Sex: Male
  Weight: 90.5 kg

DRUGS (7)
  1. MOXONIDINE [Suspect]
     Indication: HYPERTENSION
     Dosage: 0.3 MG, 1 TABLET IN A DAY
     Route: 048
     Dates: start: 20070701
  2. SIMVASTATIN [Concomitant]
     Indication: HYPERCHOLESTEROLAEMIA
     Dosage: 20 MG PER DAY
     Route: 048
     Dates: start: 20070701
  3. METOPROLOL [Suspect]
     Indication: HYPERTENSION
     Dosage: 50 MG, 1 TABLET IN DAY
     Route: 048
     Dates: start: 20070701
  4. ASPIRIN [Concomitant]
     Indication: PROPHYLAXIS
     Dosage: 100 MG/DAY
     Route: 048
     Dates: start: 20070701, end: 20081128
  5. LISINOPRIL AND HYDROCHLOROTHIAZIDE [Suspect]
     Indication: HYPERTENSION
     Dosage: 15 MG, BID
     Route: 048
     Dates: start: 20070701
  6. AMLODIPINE [Concomitant]
     Indication: HYPERTENSION
     Dosage: 5 MG/ 1 TABLET IN A DAY
     Route: 048
     Dates: start: 20070701
  7. EXFORGE [Concomitant]
     Indication: HYPERTENSION
     Dosage: 5 MG/ 1 TABLET PER DAY
     Route: 048
     Dates: start: 20070701

REACTIONS (8)
  - SYNCOPE [None]
  - PULSE ABSENT [None]
  - HYPERKALAEMIA [None]
  - BLOOD CREATININE INCREASED [None]
  - MALAISE [None]
  - LOSS OF CONSCIOUSNESS [None]
  - DIALYSIS [None]
  - BRADYCARDIA [None]
